FAERS Safety Report 10004288 (Version 1)
Quarter: 2014Q1

REPORT INFORMATION
  Report Type: Spontaneous
  Country: AT (occurrence: AT)
  Receive Date: 20140312
  Receipt Date: 20140312
  Transmission Date: 20141002
  Serious: Yes (Hospitalization, Other)
  Sender: FDA-Public Use
  Company Number: US-ASTRAZENECA-2014SE16593

PATIENT
  Sex: Female
  Weight: 3.3 kg

DRUGS (8)
  1. SYNAGIS [Suspect]
     Indication: PRODUCT USED FOR UNKNOWN INDICATION
     Dosage: 1ST INJECTION ON 28-OCT-2013. 2ND INJECTION ON 17-DEC-2013
     Route: 030
     Dates: start: 20131028, end: 20131217
  2. OLEOVIT D3 [Concomitant]
     Indication: PRODUCT USED FOR UNKNOWN INDICATION
     Dosage: 1 GTT UNTIL THE FIRST FULL YEAR OF LIFE
  3. MULTIBIONTA DROPS [Concomitant]
     Indication: PRODUCT USED FOR UNKNOWN INDICATION
  4. AKTIFERRIN [Concomitant]
     Indication: PRODUCT USED FOR UNKNOWN INDICATION
     Dosage: 3 X 4 DROPS PER DAY
  5. NASAL DROPS WITH SODIUM CHLORIDE [Concomitant]
     Indication: PRODUCT USED FOR UNKNOWN INDICATION
     Dosage: SEVERAL TIMES PER DAY
  6. CANDIO HERMAL [Concomitant]
     Indication: PRODUCT USED FOR UNKNOWN INDICATION
     Dosage: LOCAL, SEVERAL TIMES PER DAY
  7. INOTYOL [Concomitant]
     Indication: PRODUCT USED FOR UNKNOWN INDICATION
     Dosage: LOCAL, SEVERAL TIMES PER DAY
  8. ANTIFLAT [Concomitant]
     Indication: PRODUCT USED FOR UNKNOWN INDICATION
     Dosage: 1-2 HUBS BEFORE EVERY MEAL IF FLATULENC

REACTIONS (7)
  - Bronchiolitis [Unknown]
  - Apnoea [Recovered/Resolved]
  - Cyanosis [Recovered/Resolved]
  - Rhinorrhoea [Unknown]
  - Umbilical hernia [Unknown]
  - Inguinal hernia [Unknown]
  - Oedema genital [Unknown]
